FAERS Safety Report 5673763-5 (Version None)
Quarter: 2008Q2

REPORT INFORMATION
  Report Type: 
  Country: None (occurrence: None)
  Receive Date: 20080225
  Receipt Date: 20070607
  Transmission Date: 20081010
  Serious: Yes (Hospitalization)
  Sender: FDA-Public Use
  Company Number: WAES 0706USA02522

PATIENT
  Age: 75 Year
  Sex: Female

DRUGS (8)
  1. ZOCOR [Suspect]
     Dosage: PO
     Route: 047
  2. PLAVIX [Concomitant]
  3. PROTONIX [Concomitant]
  4. ASPIRIN [Concomitant]
  5. FOLIC ACID [Concomitant]
  6. INSULIN [Concomitant]
  7. METOPROLOL [Concomitant]
  8. SPIRONOLACTONE [Concomitant]

REACTIONS (1)
  - THROMBOCYTOPENIA [None]
